FAERS Safety Report 7812664-0 (Version None)
Quarter: 2011Q4

REPORT INFORMATION
  Report Type: 
  Country: None (occurrence: None)
  Receive Date: 20111013
  Receipt Date: 20111006
  Transmission Date: 20120403
  Serious: Yes (Other)
  Sender: FDA-Public Use
  Company Number: BR-BRISTOL-MYERS SQUIBB COMPANY-16144099

PATIENT
  Age: 65 Year
  Sex: Male

DRUGS (1)
  1. IRBESARTAN [Suspect]
     Indication: BLOOD PRESSURE FLUCTUATION
     Dosage: 1DF=1 TABS,0.5MG-2006
     Route: 048

REACTIONS (3)
  - DIZZINESS [None]
  - RENAL CYST [None]
  - BLOOD PRESSURE DECREASED [None]
